FAERS Safety Report 22173953 (Version 1)
Quarter: 2023Q2

REPORT INFORMATION
  Report Type: Report from Study
  Country: RO (occurrence: RO)
  Receive Date: 20230404
  Receipt Date: 20230404
  Transmission Date: 20230722
  Serious: Yes (Death)
  Sender: FDA-Public Use
  Company Number: RO-ABBVIE-4712443

PATIENT
  Age: 85 Year
  Sex: Male

DRUGS (2)
  1. CARBIDOPA\LEVODOPA [Suspect]
     Active Substance: CARBIDOPA\LEVODOPA
     Indication: Parkinson^s disease
     Dosage: DM=7.00 DC=5.70 ED=4.00 NRED=3; DMN=0.00 DCN=4.50 EDN=4.50 NREDN=0
     Route: 050
     Dates: start: 20151006, end: 20230330
  2. CARBIDOPA\LEVODOPA [Suspect]
     Active Substance: CARBIDOPA\LEVODOPA

REACTIONS (9)
  - Cardio-respiratory arrest [Fatal]
  - Hallucination [Fatal]
  - Coma [Fatal]
  - Somnolence [Fatal]
  - Abnormal dreams [Fatal]
  - Psychomotor hyperactivity [Fatal]
  - Agonal respiration [Fatal]
  - Food refusal [Fatal]
  - Fluid intake reduced [Fatal]

NARRATIVE: CASE EVENT DATE: 20230323
